FAERS Safety Report 6638984-3 (Version None)
Quarter: 2010Q1

REPORT INFORMATION
  Report Type: 
  Country: None (occurrence: None)
  Receive Date: 20100317
  Receipt Date: 20090109
  Transmission Date: 20100710
  Serious: Yes (Disabling)
  Sender: FDA-Public Use
  Company Number: CA-ASTRAZENECA-2010SE11071

PATIENT
  Age: 78 Year
  Sex: Female
  Weight: 55.3 kg

DRUGS (5)
  1. ATACAND [Suspect]
     Route: 048
  2. ACEBUTOLOL HYDROCHLORIDE [Concomitant]
     Route: 048
  3. HYDROCHLOROTHIAZIDE [Concomitant]
     Route: 048
  4. NEXIUM [Concomitant]
     Route: 048
  5. NORVASC [Concomitant]
     Route: 048

REACTIONS (5)
  - ABDOMINAL DISCOMFORT [None]
  - AGGRESSION [None]
  - FORMICATION [None]
  - HEADACHE [None]
  - WITHDRAWAL SYNDROME [None]
